FAERS Safety Report 8301066-9 (Version None)
Quarter: 2012Q2

REPORT INFORMATION
  Report Type: 
  Country: None (occurrence: None)
  Receive Date: 20120420
  Receipt Date: 20120417
  Transmission Date: 20120825
  Serious: Yes (Hospitalization)
  Sender: FDA-Public Use
  Company Number: JP-B.I. PHARMACEUTICALS,INC./RIDGEFIELD-2012-BP-07419NB

PATIENT

DRUGS (1)
  1. SPIRIVA [Suspect]
     Route: 065

REACTIONS (1)
  - LUNG NEOPLASM MALIGNANT [None]
